FAERS Safety Report 9346099 (Version 2)
Quarter: 2014Q2

REPORT INFORMATION
  Report Type: Report from Study
  Country: JP (occurrence: JP)
  Receive Date: 20130613
  Receipt Date: 20140625
  Transmission Date: 20141212
  Serious: Yes (Other)
  Sender: FDA-Public Use
  Company Number: JP-BAXTER-2013BAX017296

PATIENT
  Age: 62 Year
  Sex: Male
  Weight: 70.5 kg

DRUGS (9)
  1. SUPRANE [Suspect]
     Indication: CLAVICLE FRACTURE
     Dosage: 4-5 PERCENT
     Route: 065
     Dates: start: 20130501, end: 20130501
  2. PROPOFOL [Concomitant]
     Indication: INDUCTION OF ANAESTHESIA
     Route: 042
     Dates: start: 20130501, end: 20130501
  3. REMIFENTANIL HYDROCHLORIDE [Concomitant]
     Indication: INDUCTION OF ANAESTHESIA
     Route: 042
     Dates: start: 20130501, end: 20130501
  4. REMIFENTANIL HYDROCHLORIDE [Concomitant]
     Indication: MAINTENANCE OF ANAESTHESIA
  5. ROCURONIUM BROMIDE [Concomitant]
     Indication: MUSCLE RELAXANT THERAPY
     Route: 042
     Dates: start: 20130501, end: 20130501
  6. FENTANYL [Concomitant]
     Indication: ANALGESIC THERAPY
     Route: 042
     Dates: start: 20130501, end: 20130501
  7. FLURBIPROFEN AXETIL [Concomitant]
     Indication: ANALGESIC THERAPY
     Route: 042
     Dates: start: 20130501, end: 20130501
  8. SUGAMMADEX SODIUM [Concomitant]
     Indication: ANAESTHESIA REVERSAL
     Route: 042
     Dates: start: 20130501, end: 20130501
  9. ETILEFRINE HYDROCHLORIDE [Concomitant]
     Indication: ANAESTHETIC COMPLICATION VASCULAR
     Route: 042
     Dates: start: 20130501, end: 20130501

REACTIONS (2)
  - Laryngospasm [Recovered/Resolved]
  - Hypoventilation [Recovered/Resolved]
